FAERS Safety Report 8139301-2 (Version None)
Quarter: 2012Q1

REPORT INFORMATION
  Report Type: 
  Country: None (occurrence: None)
  Receive Date: 20120215
  Receipt Date: 20120213
  Transmission Date: 20120608
  Serious: Yes (Other)
  Sender: FDA-Public Use
  Company Number: US-BAYER-2010-008907

PATIENT
  Age: 67 Year
  Sex: Male
  Weight: 85.261 kg

DRUGS (8)
  1. ACCUVITE [Concomitant]
  2. LIPITOR [Concomitant]
     Dosage: 40 MG, QD
  3. ACETYLSALICYLIC ACID SRT [Concomitant]
     Dosage: 81 MG, QD
  4. HERBAL PREPARATION [Concomitant]
  5. BENICAR [Concomitant]
  6. MAGNEVIST [Suspect]
     Indication: NUCLEAR MAGNETIC RESONANCE IMAGING BRAIN
     Dosage: 15 ML, ONCE
     Route: 042
     Dates: start: 20101223, end: 20101223
  7. FLOMAX [Concomitant]
  8. ADVOART [Concomitant]
     Dosage: UNK UNK, QD

REACTIONS (15)
  - HEAD DISCOMFORT [None]
  - RALES [None]
  - BLOOD PRESSURE IMMEASURABLE [None]
  - HEADACHE [None]
  - NASAL CONGESTION [None]
  - ABDOMINAL PAIN UPPER [None]
  - RHONCHI [None]
  - UNRESPONSIVE TO STIMULI [None]
  - VOMITING [None]
  - PULSE ABNORMAL [None]
  - PALLOR [None]
  - HYPERSENSITIVITY [None]
  - HYPERHIDROSIS [None]
  - PUPIL FIXED [None]
  - ERYTHEMA [None]
